FAERS Safety Report 21142326 (Version 1)
Quarter: 2022Q3

REPORT INFORMATION
  Report Type: Spontaneous
  Country: US (occurrence: US)
  Receive Date: 20220728
  Receipt Date: 20220728
  Transmission Date: 20221027
  Serious: No
  Sender: FDA-Public Use
  Company Number: US-PFIZER INC-202201011059

PATIENT
  Age: 92 Year
  Sex: Female

DRUGS (2)
  1. PAXLOVID [Interacting]
     Active Substance: NIRMATRELVIR\RITONAVIR
     Indication: COVID-19 treatment
     Dosage: UNK
     Dates: start: 20220723
  2. ELIQUIS [Interacting]
     Active Substance: APIXABAN
     Indication: Cardiac disorder
     Dosage: 2.5 MG, DAILY
     Dates: end: 20220721

REACTIONS (1)
  - Drug interaction [Unknown]
